FAERS Safety Report 25578358 (Version 1)
Quarter: 2025Q3

REPORT INFORMATION
  Report Type: Report from Study
  Country: US (occurrence: None)
  Receive Date: 20250718
  Receipt Date: 20250718
  Transmission Date: 20251021
  Serious: No
  Sender: INCYTE
  Company Number: US-INCYTE CORPORATION-2025IN007506

PATIENT

DRUGS (1)
  1. JAKAFI [Suspect]
     Active Substance: RUXOLITINIB
     Indication: Chronic graft versus host disease
     Dosage: 5 MILLIGRAM, 3X/WEEK (TUESDAY, THURSDAY AND SATURDAY)
     Route: 065

REACTIONS (1)
  - Treatment noncompliance [Unknown]
